FAERS Safety Report 24412362 (Version 4)
Quarter: 2024Q4

REPORT INFORMATION
  Report Type: Spontaneous
  Country: US (occurrence: US)
  Receive Date: 20241008
  Receipt Date: 20241226
  Transmission Date: 20250115
  Serious: No
  Sender: PFIZER
  Company Number: US-PFIZER INC-202400270605

PATIENT
  Age: 51 Year
  Sex: Male
  Weight: 68.1 kg

DRUGS (4)
  1. ADCETRIS [Suspect]
     Active Substance: BRENTUXIMAB VEDOTIN
     Dosage: 125MG, Q3W (ONCE EVERY 3 WEEKS)
     Route: 042
     Dates: start: 20240819
  2. ADCETRIS [Suspect]
     Active Substance: BRENTUXIMAB VEDOTIN
     Dosage: 122 MG, EVERY 3 WEEKS
     Route: 042
     Dates: start: 2024
  3. ADCETRIS [Suspect]
     Active Substance: BRENTUXIMAB VEDOTIN
     Dosage: 120 MG, EVERY 3 WEEKS
     Route: 042
  4. ADCETRIS [Suspect]
     Active Substance: BRENTUXIMAB VEDOTIN
     Dosage: 125 MG, EVERY 3 WEEKS
     Route: 042

REACTIONS (1)
  - Weight decreased [Recovered/Resolved]

NARRATIVE: CASE EVENT DATE: 20241004
